FAERS Safety Report 17702670 (Version 1)
Quarter: 2020Q2

REPORT INFORMATION
  Report Type: Spontaneous
  Country: GB (occurrence: GB)
  Receive Date: 20200423
  Receipt Date: 20200423
  Transmission Date: 20200714
  Serious: Yes (Hospitalization, Other)
  Sender: FDA-Public Use
  Company Number: NVSC2020GB108063

PATIENT
  Age: 57 Year
  Sex: Male

DRUGS (13)
  1. INVOKANA [Suspect]
     Active Substance: CANAGLIFLOZIN
     Indication: DIABETES MELLITUS
     Dosage: 100 MG
     Route: 048
     Dates: start: 20151120, end: 20160208
  2. PREGABALIN. [Concomitant]
     Active Substance: PREGABALIN
     Indication: NEUROPATHY PERIPHERAL
     Dosage: 300 MG, QD
     Route: 065
     Dates: start: 20040226
  3. MONOMIL [Concomitant]
     Active Substance: ISOSORBIDE MONONITRATE
     Indication: MYOCARDIAL ISCHAEMIA
     Dosage: 30 MG, QD
     Route: 065
     Dates: start: 20101118
  4. LANSOPRAZOLE. [Concomitant]
     Active Substance: LANSOPRAZOLE
     Indication: GASTROOESOPHAGEAL REFLUX DISEASE
     Dosage: 30 MG, QD
     Route: 065
     Dates: start: 20040124
  5. INVOKANA [Suspect]
     Active Substance: CANAGLIFLOZIN
     Dosage: 300 MG
     Route: 048
     Dates: start: 20160208, end: 20160512
  6. ASPIRIN. [Concomitant]
     Active Substance: ASPIRIN
     Indication: MYOCARDIAL ISCHAEMIA
     Dosage: 75 MG
     Route: 065
     Dates: start: 20060227
  7. METFORMIN [Suspect]
     Active Substance: METFORMIN HYDROCHLORIDE
     Indication: DIABETES MELLITUS
     Dosage: 2 G, QD
     Route: 065
     Dates: start: 20051006
  8. SIMVASTATIN. [Concomitant]
     Active Substance: SIMVASTATIN
     Indication: MYOCARDIAL ISCHAEMIA
     Dosage: 40 MG
     Route: 065
     Dates: start: 20060227
  9. HUMALOG MIX [Suspect]
     Active Substance: INSULIN LISPRO
     Indication: DIABETES MELLITUS
     Dosage: UNK
     Route: 065
     Dates: start: 20120822
  10. DULOXETINE. [Concomitant]
     Active Substance: DULOXETINE
     Indication: NEUROPATHY PERIPHERAL
     Dosage: 60 MG, QD
     Route: 065
     Dates: start: 20110724
  11. FUROSEMIDE. [Concomitant]
     Active Substance: FUROSEMIDE
     Indication: BLOOD PRESSURE INCREASED
     Dosage: UNK, 80 MG MORNING 40 MG NOON
     Route: 065
     Dates: start: 20141212
  12. BISOPROLOL [Concomitant]
     Active Substance: BISOPROLOL
     Indication: MYOCARDIAL ISCHAEMIA
     Dosage: 2.5 MG
     Route: 065
     Dates: start: 20060227
  13. LOSARTAN. [Concomitant]
     Active Substance: LOSARTAN
     Indication: BLOOD PRESSURE INCREASED
     Dosage: 25 MG, QD
     Route: 065
     Dates: start: 20150108

REACTIONS (1)
  - Extremity necrosis [Unknown]

NARRATIVE: CASE EVENT DATE: 20160512
